FAERS Safety Report 13274461 (Version 1)
Quarter: 2017Q1

REPORT INFORMATION
  Report Type: Spontaneous
  Country: IT (occurrence: IT)
  Receive Date: 20170227
  Receipt Date: 20170227
  Transmission Date: 20170428
  Serious: Yes (Hospitalization)
  Sender: FDA-Public Use
  Company Number: IT-MYLANLABS-2017M1012520

PATIENT

DRUGS (6)
  1. CLARITHROMYCIN. [Suspect]
     Active Substance: CLARITHROMYCIN
     Indication: PNEUMONIA BACTERIAL
     Dosage: 500 MG, QD
     Route: 048
     Dates: start: 20170206, end: 20170209
  2. TACHIPIRINA [Interacting]
     Active Substance: ACETAMINOPHEN
     Indication: PYREXIA
     Dosage: 500 MG, QD
     Route: 048
     Dates: start: 20170206, end: 20170213
  3. SINTROM [Interacting]
     Active Substance: ACENOCOUMAROL
     Indication: ATRIAL FIBRILLATION
     Dosage: 1 MG, QD
     Route: 048
     Dates: start: 20140101, end: 20170213
  4. CONTROL                            /00273201/ [Concomitant]
     Active Substance: LORAZEPAM
     Indication: PRODUCT USED FOR UNKNOWN INDICATION
     Dosage: UNK
  5. GASTROLOC                          /01263204/ [Concomitant]
     Indication: PRODUCT USED FOR UNKNOWN INDICATION
     Dosage: UNK
  6. EUTIROX [Concomitant]
     Active Substance: LEVOTHYROXINE SODIUM
     Indication: PRODUCT USED FOR UNKNOWN INDICATION
     Dosage: UNK

REACTIONS (4)
  - Respiratory depression [Recovered/Resolved]
  - Pyrexia [Recovered/Resolved]
  - Drug interaction [Unknown]
  - Weight decreased [Recovered/Resolved]

NARRATIVE: CASE EVENT DATE: 20170213
